FAERS Safety Report 25493408 (Version 2)
Quarter: 2025Q4

REPORT INFORMATION
  Report Type: Spontaneous
  Country: BY (occurrence: BY)
  Receive Date: 20250630
  Receipt Date: 20251222
  Transmission Date: 20260118
  Serious: Yes (Other)
  Sender: MYLAN
  Company Number: BY-MYLANLABS-2025M1054689

PATIENT
  Age: 42 Year
  Sex: Male

DRUGS (36)
  1. FONDAPARINUX [Suspect]
     Active Substance: FONDAPARINUX
     Indication: Anticoagulant therapy
     Dosage: 7.5 MILLIGRAM, QD
     Dates: start: 201906
  2. FONDAPARINUX [Suspect]
     Active Substance: FONDAPARINUX
     Dosage: 7.5 MILLIGRAM, QD
     Route: 058
     Dates: start: 201906
  3. FONDAPARINUX [Suspect]
     Active Substance: FONDAPARINUX
     Dosage: 7.5 MILLIGRAM, QD
     Route: 058
     Dates: start: 201906
  4. FONDAPARINUX [Suspect]
     Active Substance: FONDAPARINUX
     Dosage: 7.5 MILLIGRAM, QD
     Dates: start: 201906
  5. AMOXICILLIN\CLAVULANIC ACID [Suspect]
     Active Substance: AMOXICILLIN\CLAVULANIC ACID
     Indication: Antibiotic therapy
     Dosage: 1200 MILLIGRAM, QD
     Dates: start: 201906
  6. AMOXICILLIN\CLAVULANIC ACID [Suspect]
     Active Substance: AMOXICILLIN\CLAVULANIC ACID
     Dosage: 1200 MILLIGRAM, QD
     Route: 065
     Dates: start: 201906
  7. AMOXICILLIN\CLAVULANIC ACID [Suspect]
     Active Substance: AMOXICILLIN\CLAVULANIC ACID
     Dosage: 1200 MILLIGRAM, QD
     Route: 065
     Dates: start: 201906
  8. AMOXICILLIN\CLAVULANIC ACID [Suspect]
     Active Substance: AMOXICILLIN\CLAVULANIC ACID
     Dosage: 1200 MILLIGRAM, QD
     Dates: start: 201906
  9. VANCOMYCIN [Suspect]
     Active Substance: VANCOMYCIN
     Indication: Antibiotic therapy
     Dosage: 2 GRAM, QD
     Dates: start: 201906
  10. VANCOMYCIN [Suspect]
     Active Substance: VANCOMYCIN
     Dosage: 2 GRAM, QD
     Route: 042
     Dates: start: 201906
  11. VANCOMYCIN [Suspect]
     Active Substance: VANCOMYCIN
     Dosage: 2 GRAM, QD
     Route: 042
     Dates: start: 201906
  12. VANCOMYCIN [Suspect]
     Active Substance: VANCOMYCIN
     Dosage: 2 GRAM, QD
     Dates: start: 201906
  13. METOPROLOL [Suspect]
     Active Substance: METOPROLOL
     Indication: Product used for unknown indication
     Dosage: 50 MILLIGRAM, QD
     Route: 061
     Dates: start: 201906
  14. METOPROLOL [Suspect]
     Active Substance: METOPROLOL
     Dosage: 50 MILLIGRAM, QD
     Route: 048
     Dates: start: 201906
  15. METOPROLOL [Suspect]
     Active Substance: METOPROLOL
     Dosage: 50 MILLIGRAM, QD
     Route: 048
     Dates: start: 201906
  16. METOPROLOL [Suspect]
     Active Substance: METOPROLOL
     Dosage: 50 MILLIGRAM, QD
     Route: 061
     Dates: start: 201906
  17. SPIRONOLACTONE [Suspect]
     Active Substance: SPIRONOLACTONE
     Indication: Product used for unknown indication
     Dosage: 25 MILLIGRAM, QD
     Route: 061
     Dates: start: 201906
  18. SPIRONOLACTONE [Suspect]
     Active Substance: SPIRONOLACTONE
     Dosage: 25 MILLIGRAM, QD
     Route: 048
     Dates: start: 201906
  19. SPIRONOLACTONE [Suspect]
     Active Substance: SPIRONOLACTONE
     Dosage: 25 MILLIGRAM, QD
     Route: 048
     Dates: start: 201906
  20. SPIRONOLACTONE [Suspect]
     Active Substance: SPIRONOLACTONE
     Dosage: 25 MILLIGRAM, QD
     Route: 061
     Dates: start: 201906
  21. OMEPRAZOLE [Suspect]
     Active Substance: OMEPRAZOLE
     Indication: Product used for unknown indication
     Dosage: 20 MILLIGRAM, QD
     Route: 061
     Dates: start: 201906
  22. OMEPRAZOLE [Suspect]
     Active Substance: OMEPRAZOLE
     Dosage: 20 MILLIGRAM, QD
     Route: 048
     Dates: start: 201906
  23. OMEPRAZOLE [Suspect]
     Active Substance: OMEPRAZOLE
     Dosage: 20 MILLIGRAM, QD
     Route: 048
     Dates: start: 201906
  24. OMEPRAZOLE [Suspect]
     Active Substance: OMEPRAZOLE
     Dosage: 20 MILLIGRAM, QD
     Route: 061
     Dates: start: 201906
  25. FUROSEMIDE [Suspect]
     Active Substance: FUROSEMIDE
     Indication: Product used for unknown indication
     Dosage: 100 MILLIGRAM, QD
     Dates: start: 201906
  26. FUROSEMIDE [Suspect]
     Active Substance: FUROSEMIDE
     Dosage: 100 MILLIGRAM, QD
     Route: 042
     Dates: start: 201906
  27. FUROSEMIDE [Suspect]
     Active Substance: FUROSEMIDE
     Dosage: 100 MILLIGRAM, QD
     Route: 042
     Dates: start: 201906
  28. FUROSEMIDE [Suspect]
     Active Substance: FUROSEMIDE
     Dosage: 100 MILLIGRAM, QD
     Dates: start: 201906
  29. EMTRICITABINE\TENOFOVIR DISOPROXIL SUCCINATE [Suspect]
     Active Substance: EMTRICITABINE\TENOFOVIR DISOPROXIL SUCCINATE
     Indication: Antiretroviral therapy
     Dosage: 300/200 MILLIGRAM, QD
     Dates: start: 201906
  30. EMTRICITABINE\TENOFOVIR DISOPROXIL SUCCINATE [Suspect]
     Active Substance: EMTRICITABINE\TENOFOVIR DISOPROXIL SUCCINATE
     Dosage: 300/200 MILLIGRAM, QD
     Route: 065
     Dates: start: 201906
  31. EMTRICITABINE\TENOFOVIR DISOPROXIL SUCCINATE [Suspect]
     Active Substance: EMTRICITABINE\TENOFOVIR DISOPROXIL SUCCINATE
     Dosage: 300/200 MILLIGRAM, QD
     Route: 065
     Dates: start: 201906
  32. EMTRICITABINE\TENOFOVIR DISOPROXIL SUCCINATE [Suspect]
     Active Substance: EMTRICITABINE\TENOFOVIR DISOPROXIL SUCCINATE
     Dosage: 300/200 MILLIGRAM, QD
     Dates: start: 201906
  33. EFAVIRENZ [Suspect]
     Active Substance: EFAVIRENZ
     Indication: Antiretroviral therapy
     Dosage: 600 MILLIGRAM, QD
     Dates: start: 201906
  34. EFAVIRENZ [Suspect]
     Active Substance: EFAVIRENZ
     Dosage: 600 MILLIGRAM, QD
     Route: 065
     Dates: start: 201906
  35. EFAVIRENZ [Suspect]
     Active Substance: EFAVIRENZ
     Dosage: 600 MILLIGRAM, QD
     Route: 065
     Dates: start: 201906
  36. EFAVIRENZ [Suspect]
     Active Substance: EFAVIRENZ
     Dosage: 600 MILLIGRAM, QD
     Dates: start: 201906

REACTIONS (1)
  - Condition aggravated [Recovering/Resolving]

NARRATIVE: CASE EVENT DATE: 20190615
